FAERS Safety Report 23820907 (Version 1)
Quarter: 2024Q2

REPORT INFORMATION
  Report Type: Spontaneous
  Country: US (occurrence: US)
  Receive Date: 20240506
  Receipt Date: 20240506
  Transmission Date: 20240716
  Serious: No
  Sender: FDA-Public Use
  Company Number: US-BAYER-2024A058979

PATIENT
  Age: 73 Year
  Sex: Female

DRUGS (1)
  1. CLIMARA PRO [Suspect]
     Active Substance: ESTRADIOL\LEVONORGESTREL
     Indication: Vaginal haemorrhage
     Dosage: UNK MG
     Route: 062

REACTIONS (2)
  - Device adhesion issue [None]
  - Device use issue [None]
